FAERS Safety Report 19464834 (Version 2)
Quarter: 2021Q2

REPORT INFORMATION
  Report Type: Spontaneous
  Country: US (occurrence: US)
  Receive Date: 20210626
  Receipt Date: 20210626
  Transmission Date: 20210717
  Serious: No
  Sender: FDA-Public Use
  Company Number: US-ABBVIE-21K-163-3924121-00

PATIENT

DRUGS (4)
  1. SKYRIZI [Suspect]
     Active Substance: RISANKIZUMAB-RZAA
     Indication: PSORIASIS
  2. COVID?19 VACCINE [Concomitant]
     Indication: COVID-19 IMMUNISATION
     Route: 030
  3. COVID?19 VACCINE [Concomitant]
     Route: 030
     Dates: start: 20210511, end: 20210511
  4. SKYRIZI [Suspect]
     Active Substance: RISANKIZUMAB-RZAA
     Indication: PSORIASIS
     Route: 058
     Dates: start: 2020

REACTIONS (2)
  - Photosensitivity reaction [Unknown]
  - Pruritus [Unknown]

NARRATIVE: CASE EVENT DATE: 20200516
